FAERS Safety Report 5290364-1 (Version None)
Quarter: 2007Q2

REPORT INFORMATION
  Report Type: 
  Country: None (occurrence: None)
  Receive Date: 20070409
  Receipt Date: 20070329
  Transmission Date: 20071010
  Serious: Yes (Other)
  Sender: FDA-Public Use
  Company Number: US-AVENTIS-200710558US

PATIENT
  Sex: Female
  Weight: 100 kg

DRUGS (15)
  1. KETEK [Suspect]
     Indication: BRONCHITIS
     Route: 048
     Dates: start: 20061108, end: 20061114
  2. LOVASTATIN [Concomitant]
     Dosage: DOSE: UNK
     Route: 048
     Dates: start: 20060303
  3. LOVASTATIN [Concomitant]
     Route: 048
     Dates: start: 20061108, end: 20061115
  4. LOVASTATIN [Concomitant]
     Route: 048
     Dates: start: 20061116, end: 20061206
  5. LOVASTATIN [Concomitant]
     Dosage: DOSE: UNK
     Dates: start: 20070119
  6. ENALAPRIL MALEATE AND HYDROCHLOROTHIAZIDE [Concomitant]
     Indication: HYPERTENSION
     Dosage: DOSE: 10/25
     Route: 048
     Dates: end: 20061211
  7. ENALAPRIL MALEATE AND HYDROCHLOROTHIAZIDE [Concomitant]
     Dosage: DOSE: UNK
     Dates: start: 20070119
  8. ASPIRIN [Concomitant]
     Route: 048
     Dates: start: 20050810, end: 20061211
  9. METFORMIN HCL [Concomitant]
     Dosage: DOSE: AM: 500, PM:1000
     Route: 048
     Dates: end: 20061211
  10. METFORMIN HCL [Concomitant]
     Dosage: DOSE: 500 AM, 1000 PM
     Dates: start: 20070112
  11. TOPROL-XL [Concomitant]
     Indication: HYPERTENSION
     Route: 048
     Dates: start: 20050811, end: 20061211
  12. TOPROL-XL [Concomitant]
     Dosage: DOSE: UNK
     Dates: start: 20070119
  13. VITAMIN CAP [Concomitant]
     Dosage: DOSE: UNK
  14. TYLENOL [Concomitant]
     Dosage: DOSE: UNK
  15. ADVIL [Concomitant]
     Dosage: DOSE: UNK

REACTIONS (8)
  - ABDOMINAL PAIN UPPER [None]
  - ALANINE AMINOTRANSFERASE INCREASED [None]
  - ASPARTATE AMINOTRANSFERASE INCREASED [None]
  - BLOOD BILIRUBIN INCREASED [None]
  - FATIGUE [None]
  - HEPATITIS [None]
  - JAUNDICE [None]
  - PYREXIA [None]
